FAERS Safety Report 9516213 (Version 2)
Quarter: 2014Q1

REPORT INFORMATION
  Report Type: Spontaneous
  Country: US (occurrence: None)
  Receive Date: 20130305
  Receipt Date: 20140306
  Transmission Date: 20141002
  Serious: Yes (Other)
  Sender: FDA-Public Use
  Company Number: 163-21880-12113313

PATIENT
  Age: 77 Year
  Sex: Male
  Weight: 82.1 kg

DRUGS (13)
  1. REVLIMID (LENALIDOMIDE) (25 MILLIGRAM, CAPSULES) [Suspect]
     Indication: LYMPHOMA
     Dosage: 25 MG, 21 IN 28 D, PO
     Route: 048
     Dates: start: 20121022
  2. METOPROLOL TARTRATE [Concomitant]
  3. VALIUM (DIAZEPAM) [Concomitant]
  4. TRAZODONE [Concomitant]
  5. CASODEX (BICALUTAMIDE) [Concomitant]
  6. ASPIRIN (ACETYLSALICYLIC ACID) [Concomitant]
  7. LEVOXYL (LEVOTHYROXINE SODIUM) [Concomitant]
  8. VITAMIN B COMPLEX (B-KOMPLEX ^LECIVA^) [Concomitant]
  9. VITAMIN C (ASCORBIC ACID) [Concomitant]
  10. AMLODIPINE BESYLATE (AMLODIPINE BESILATE) [Concomitant]
  11. BICALUTAMIDE [Concomitant]
  12. FISH OIL [Concomitant]
  13. HYDROCODONE/HOMATROPINE (HYDROCODONE COMPOUND) [Concomitant]

REACTIONS (4)
  - Diarrhoea [None]
  - Transient ischaemic attack [None]
  - Eructation [None]
  - Pallor [None]
